FAERS Safety Report 12972757 (Version 2)
Quarter: 2016Q4

REPORT INFORMATION
  Report Type: Report from Study
  Country: US (occurrence: US)
  Receive Date: 20161124
  Receipt Date: 20161125
  Transmission Date: 20170207
  Serious: Yes (Other)
  Sender: FDA-Public Use
  Company Number: US-GILEAD-2016-0244994

PATIENT
  Age: 68 Year
  Sex: Female

DRUGS (15)
  1. AMBRISENTAN [Suspect]
     Active Substance: AMBRISENTAN
     Indication: PULMONARY ARTERIAL HYPERTENSION
     Dosage: 5 MG, QD
     Route: 065
     Dates: start: 20160808, end: 20161122
  2. SYMBICORT [Concomitant]
     Active Substance: BUDESONIDE\FORMOTEROL FUMARATE DIHYDRATE
  3. LISINOPRIL. [Concomitant]
     Active Substance: LISINOPRIL
  4. COENZYME Q10 [Concomitant]
     Active Substance: UBIDECARENONE
  5. ATENOLOL. [Concomitant]
     Active Substance: ATENOLOL
  6. FUROSEMIDE. [Concomitant]
     Active Substance: FUROSEMIDE
  7. METFORMIN [Concomitant]
     Active Substance: METFORMIN HYDROCHLORIDE
  8. MULTIVITAMIN                       /00097801/ [Concomitant]
     Active Substance: VITAMINS
  9. OMEPRAZOLE. [Concomitant]
     Active Substance: OMEPRAZOLE
  10. GABAPENTIN. [Concomitant]
     Active Substance: GABAPENTIN
  11. NOVOLIN [Concomitant]
     Active Substance: INSULIN HUMAN
  12. PROAIR HFA [Concomitant]
     Active Substance: ALBUTEROL SULFATE
  13. FISH OIL [Concomitant]
     Active Substance: FISH OIL
  14. AMLODIPINE [Concomitant]
     Active Substance: AMLODIPINE BESYLATE
  15. KCL [Concomitant]
     Active Substance: POTASSIUM CHLORIDE

REACTIONS (3)
  - Unevaluable event [Recovered/Resolved]
  - Unevaluable event [Unknown]
  - Peripheral swelling [Recovered/Resolved]
